FAERS Safety Report 12422828 (Version 1)
Quarter: 2016Q2

REPORT INFORMATION
  Report Type: Spontaneous
  Country: US (occurrence: None)
  Receive Date: 20160531
  Receipt Date: 20160531
  Transmission Date: 20160815
  Serious: Yes (Disabling, Other)
  Sender: FDA-Public Use
  Company Number: None

PATIENT
  Age: 59 Year
  Sex: Male
  Weight: 99.79 kg

DRUGS (5)
  1. LEVEMIR [Concomitant]
     Active Substance: INSULIN DETEMIR
  2. EFFIENT [Suspect]
     Active Substance: PRASUGREL HYDROCHLORIDE
     Indication: DRUG THERAPY
     Dosage: 1 TABLET(S) IN THE MORNING TAKEN BY MOUTH
     Route: 048
     Dates: start: 20160209, end: 20160510
  3. LISINOPRIL. [Concomitant]
     Active Substance: LISINOPRIL
  4. CRESTOR [Concomitant]
     Active Substance: ROSUVASTATIN CALCIUM
  5. ASPRIN [Concomitant]
     Active Substance: ASPIRIN

REACTIONS (4)
  - Fatigue [None]
  - Decreased activity [None]
  - Poor quality sleep [None]
  - Insomnia [None]

NARRATIVE: CASE EVENT DATE: 20160209
